FAERS Safety Report 8005430-7 (Version None)
Quarter: 2011Q4

REPORT INFORMATION
  Report Type: 
  Country: None (occurrence: None)
  Receive Date: 20111223
  Receipt Date: 20111212
  Transmission Date: 20120403
  Serious: Yes (Other)
  Sender: FDA-Public Use
  Company Number: ES-ROCHE-1021364

PATIENT

DRUGS (4)
  1. HERCEPTIN [Suspect]
     Dosage: MAITENANCE DOSE
  2. CYCLOPHOSPHAMIDE [Suspect]
     Indication: BREAST CANCER METASTATIC
  3. DOXORUBICIN HYDROCHLORIDE [Suspect]
     Indication: BREAST CANCER METASTATIC
  4. HERCEPTIN [Suspect]
     Indication: BREAST CANCER METASTATIC
     Dosage: LOADING DOSE ON DAY 1

REACTIONS (12)
  - LYMPHOPENIA [None]
  - NEUTROPENIA [None]
  - MUCOSAL INFLAMMATION [None]
  - FEBRILE NEUTROPENIA [None]
  - INFECTION [None]
  - FATIGUE [None]
  - EXFOLIATIVE RASH [None]
  - BLOOD ALKALINE PHOSPHATASE ABNORMAL [None]
  - PALMAR-PLANTAR ERYTHRODYSAESTHESIA SYNDROME [None]
  - LEUKOPENIA [None]
  - STOMATITIS [None]
  - HYPERSENSITIVITY [None]
